FAERS Safety Report 4691587-2 (Version None)
Quarter: 2005Q2

REPORT INFORMATION
  Report Type: 
  Country: None (occurrence: None)
  Receive Date: 20050616
  Receipt Date: 20050128
  Transmission Date: 20051028
  Serious: Yes (Death, Other)
  Sender: FDA-Public Use
  Company Number: DE-BOEHRINGER INGELHEIM PHARMACEUTICALS, INC.-2005-DE-00402BY

PATIENT
  Sex: Female

DRUGS (6)
  1. KINZALKOMB [Suspect]
     Indication: HYPERTENSION
     Dosage: STRENGTH: 80MG TELMISARTAN/12,5MG HCT
     Route: 048
     Dates: start: 20050113
  2. ASS 300 [Concomitant]
     Route: 048
     Dates: start: 19990318
  3. NOVODIGAL 0.2 [Concomitant]
     Route: 048
     Dates: start: 19990318
  4. NORVASC [Concomitant]
  5. ENABETA [Concomitant]
     Dates: end: 20050112
  6. DIURETICS [Concomitant]

REACTIONS (4)
  - ATRIAL FIBRILLATION [None]
  - CORONARY ARTERY DISEASE [None]
  - HYPERTENSION [None]
  - TRIPLE VESSEL BYPASS GRAFT [None]
